FAERS Safety Report 7091737-7 (Version None)
Quarter: 2010Q4

REPORT INFORMATION
  Report Type: 
  Country: None (occurrence: None)
  Receive Date: 20101109
  Receipt Date: 20101102
  Transmission Date: 20110411
  Serious: Yes (Death, Hospitalization, Other)
  Sender: FDA-Public Use
  Company Number: PHEH2006US09623

PATIENT
  Sex: Male
  Weight: 72.562 kg

DRUGS (39)
  1. ZOMETA [Suspect]
     Indication: BREAST CANCER METASTATIC
  2. AREDIA [Suspect]
     Indication: BREAST CANCER METASTATIC
  3. PROCARDIA [Concomitant]
     Indication: AORTIC VALVE INCOMPETENCE
  4. ZOCOR [Concomitant]
     Indication: BLOOD CHOLESTEROL
  5. AMICAR [Concomitant]
     Indication: HAEMORRHAGE
  6. ARIMIDEX [Concomitant]
  7. LOPRESSOR [Concomitant]
  8. DIGOXIN [Concomitant]
  9. COUMADIN [Concomitant]
  10. CALCIUM [Concomitant]
  11. MULTI-VITAMINS [Concomitant]
  12. LOVENOX [Concomitant]
  13. CARTIA                                  /AUS/ [Concomitant]
  14. DEMADEX [Concomitant]
  15. ANTIVERT [Concomitant]
  16. TAXOL [Concomitant]
  17. ARIMIDEX [Concomitant]
  18. HYDROCODONE [Concomitant]
  19. OXYCODONE HCL [Concomitant]
  20. CLINDAMYCIN [Concomitant]
  21. KETOCONAZOLE [Concomitant]
  22. GENTAK [Concomitant]
  23. EPOGEN [Concomitant]
  24. LANOXIN [Concomitant]
     Dosage: 0.25 MG, QD
  25. MORPHINE [Concomitant]
     Dosage: 2 MG, UNK
     Route: 042
  26. HYDROXYZINE PAMOATE [Concomitant]
     Dosage: 25 MG, QHS
     Route: 048
     Dates: start: 20060323
  27. EPOETIN ALFA [Concomitant]
     Dosage: 40000 UNIT/ML EVERY SEVEN DAY
     Route: 058
     Dates: start: 20060330
  28. SALINE [Concomitant]
     Dosage: 3 MG, Q12H
     Dates: start: 20060329
  29. PANTOPRAZOLE [Concomitant]
     Dosage: 40 MG
     Route: 048
     Dates: start: 20060324
  30. FUROSEMIDE [Concomitant]
     Dosage: 40 MG
     Route: 042
     Dates: start: 20060324
  31. EZETIMIBE [Concomitant]
     Dosage: 10 MG
     Route: 048
     Dates: start: 20060322
  32. POTASSIUM CHLORIDE [Concomitant]
     Dosage: 20 MEQ
     Route: 042
  33. ZOLOFT [Concomitant]
     Dosage: 50 MG
     Route: 048
     Dates: start: 20060322
  34. TYLENOL [Concomitant]
  35. CODEINE [Concomitant]
     Dosage: 1 TABLET EVERY 4-6 HR
     Route: 048
     Dates: start: 20060323
  36. DILAUDID [Concomitant]
     Dosage: 2 MG/ML
     Route: 042
     Dates: start: 20060321
  37. PROMETHAZINE [Concomitant]
     Dosage: 12.5 MG, Q8H
     Dates: start: 20060321
  38. LOPRESSOR [Concomitant]
  39. ZOCOR [Concomitant]

REACTIONS (78)
  - ABDOMINAL PAIN UPPER [None]
  - ABSCESS JAW [None]
  - ACTINOMYCOSIS [None]
  - ALANINE AMINOTRANSFERASE INCREASED [None]
  - ALPHA HAEMOLYTIC STREPTOCOCCAL INFECTION [None]
  - ANAEMIA [None]
  - ANGINA PECTORIS [None]
  - ANXIETY [None]
  - AORTIC VALVE REPAIR [None]
  - AORTIC VALVE REPLACEMENT [None]
  - AORTIC VALVE STENOSIS [None]
  - ASBESTOSIS [None]
  - ASPARTATE AMINOTRANSFERASE INCREASED [None]
  - ASTHENIA [None]
  - BACK DISORDER [None]
  - BACK PAIN [None]
  - BILE DUCT STONE [None]
  - BLOOD ALKALINE PHOSPHATASE INCREASED [None]
  - BLOOD BILIRUBIN INCREASED [None]
  - BLOOD CALCIUM DECREASED [None]
  - BLOOD CREATININE DECREASED [None]
  - BODY TINEA [None]
  - CARDIAC FAILURE CONGESTIVE [None]
  - CENTRAL VENOUS CATHETERISATION [None]
  - CHOLELITHIASIS [None]
  - CHROMATURIA [None]
  - DEATH [None]
  - DEBRIDEMENT [None]
  - DECREASED APPETITE [None]
  - DEHYDRATION [None]
  - DENTAL OPERATION [None]
  - DERMATITIS ATOPIC [None]
  - DIARRHOEA [None]
  - DIZZINESS [None]
  - DYSPNOEA [None]
  - EJECTION FRACTION DECREASED [None]
  - GINGIVITIS [None]
  - HAEMORRHAGE [None]
  - HEPATIC STEATOSIS [None]
  - HYPERCHOLESTEROLAEMIA [None]
  - HYPERLIPIDAEMIA [None]
  - INFLAMMATION [None]
  - INJURY [None]
  - INTERTRIGO [None]
  - JAUNDICE CHOLESTATIC [None]
  - JOINT EFFUSION [None]
  - LIVER FUNCTION TEST ABNORMAL [None]
  - LUNG NEOPLASM [None]
  - MYELODYSPLASTIC SYNDROME [None]
  - OESOPHAGEAL ULCER [None]
  - OESOPHAGITIS [None]
  - ORAL DISCHARGE [None]
  - ORAL DISCOMFORT [None]
  - OSTEOMYELITIS [None]
  - OSTEONECROSIS OF JAW [None]
  - PAIN [None]
  - PALPITATIONS [None]
  - PLATELET COUNT DECREASED [None]
  - PLEURAL FIBROSIS [None]
  - PROSTATOMEGALY [None]
  - PROTHROMBIN TIME PROLONGED [None]
  - PULMONARY FIBROSIS [None]
  - RHINORRHOEA [None]
  - ROTATOR CUFF SYNDROME [None]
  - SCHAMBERG'S DISEASE [None]
  - SPINAL DISORDER [None]
  - SPINAL OSTEOARTHRITIS [None]
  - STASIS DERMATITIS [None]
  - SURGERY [None]
  - TACHYCARDIA [None]
  - TENOSYNOVITIS STENOSANS [None]
  - THROMBOCYTOPENIA [None]
  - TINEA PEDIS [None]
  - TOOTH EXTRACTION [None]
  - VERTIGO [None]
  - WEIGHT DECREASED [None]
  - WHITE BLOOD CELL COUNT DECREASED [None]
  - WOUND [None]
